FAERS Safety Report 24739525 (Version 2)
Quarter: 2025Q1

REPORT INFORMATION
  Report Type: Spontaneous
  Country: IT (occurrence: IT)
  Receive Date: 20241216
  Receipt Date: 20250106
  Transmission Date: 20250408
  Serious: Yes (Disabling, Other)
  Sender: DAIICHI
  Company Number: None

PATIENT
  Age: 75 Year
  Sex: Female

DRUGS (1)
  1. TRASTUZUMAB DERUXTECAN [Suspect]
     Active Substance: TRASTUZUMAB DERUXTECAN
     Indication: Breast cancer stage IV
     Dosage: 1 DOSAGE FORM, ONCE EVERY 3 WK (EVERY 21 DAYS)
     Route: 042
     Dates: start: 20240705, end: 20240816

REACTIONS (2)
  - Cardiac failure [Recovering/Resolving]
  - Interstitial lung disease [Recovering/Resolving]

NARRATIVE: CASE EVENT DATE: 20240831
